FAERS Safety Report 5649079-X (Version None)
Quarter: 2008Q1

REPORT INFORMATION
  Report Type: 
  Country: None (occurrence: None)
  Receive Date: 20080131
  Receipt Date: 20071203
  Transmission Date: 20080703
  Serious: No
  Sender: FDA-Public Use
  Company Number: US200709005714

PATIENT
  Age: 72 Year
  Sex: Female
  Weight: 73.9 kg

DRUGS (5)
  1. BYETTA [Suspect]
     Indication: TYPE 2 DIABETES MELLITUS
     Dosage: 5 UG, 2/D, SUBCUTANEOUS; 10 UG, 2/D, SUBCUTANEOUS; 5 UG, SUBCUTANEOUS; 10 UG, SUBCUTANEOUS; SUBCUTAN
     Route: 058
     Dates: start: 20070801, end: 20070901
  2. BYETTA [Suspect]
     Indication: TYPE 2 DIABETES MELLITUS
     Dosage: 5 UG, 2/D, SUBCUTANEOUS; 10 UG, 2/D, SUBCUTANEOUS; 5 UG, SUBCUTANEOUS; 10 UG, SUBCUTANEOUS; SUBCUTAN
     Route: 058
     Dates: start: 20070911
  3. ACTOS [Concomitant]
  4. GLUCOPHAGE [Concomitant]
  5. AMARYL [Concomitant]

REACTIONS (11)
  - ASTHENIA [None]
  - DIARRHOEA [None]
  - DRUG INEFFECTIVE [None]
  - FATIGUE [None]
  - INCORRECT DOSE ADMINISTERED [None]
  - INJECTION SITE IRRITATION [None]
  - NASOPHARYNGITIS [None]
  - NAUSEA [None]
  - SOMNOLENCE [None]
  - VOMITING [None]
  - WEIGHT DECREASED [None]
